FAERS Safety Report 5564341-7 (Version None)
Quarter: 2007Q4

REPORT INFORMATION
  Report Type: 
  Country: None (occurrence: None)
  Receive Date: 20071218
  Receipt Date: 20071212
  Transmission Date: 20080405
  Serious: Yes (Other)
  Sender: FDA-Public Use
  Company Number: PHBS2007JP18892

PATIENT
  Age: 7 Year
  Sex: Male

DRUGS (2)
  1. TEGRETOL [Suspect]
     Dosage: 25 MG, BID
     Route: 048
     Dates: start: 20070926, end: 20071009
  2. TEGRETOL [Suspect]
     Dosage: 40 MG, BID
     Route: 048
     Dates: start: 20071010

REACTIONS (1)
  - WEIGHT INCREASED [None]
